FAERS Safety Report 5283955-5 (Version None)
Quarter: 2007Q1

REPORT INFORMATION
  Report Type: 
  Country: None (occurrence: None)
  Receive Date: 20070327
  Receipt Date: 20070318
  Transmission Date: 20070707
  Serious: Yes (Other)
  Sender: FDA-Public Use
  Company Number: 238568

PATIENT
  Age: 55 Year
  Sex: Male

DRUGS (8)
  1. XOLAIR [Suspect]
     Indication: ASTHMA
     Dosage: Q2W, SUBCUTANEOUS
     Route: 058
     Dates: start: 20050401
  2. FLUTICASONE (FLUTICASONE PROPIONATE) [Concomitant]
  3. PROPIONIC ACID (PROPIONIC ACID) [Concomitant]
  4. SALMETEROL XINAFOATE (SALMETEROL XINAFOATE) [Concomitant]
  5. BUDESONIDE [Concomitant]
  6. MONTELUKAST SODIUM [Concomitant]
  7. CYCLOSPORINE [Concomitant]
  8. DOXYCYCLINE [Concomitant]

REACTIONS (3)
  - CATARACT [None]
  - CORNEAL ABRASION [None]
  - VISUAL DISTURBANCE [None]
